FAERS Safety Report 11989156 (Version 2)
Quarter: 2016Q2

REPORT INFORMATION
  Report Type: Report from Study
  Country: JP (occurrence: JP)
  Receive Date: 20160202
  Receipt Date: 20160511
  Transmission Date: 20160815
  Serious: No
  Sender: FDA-Public Use
  Company Number: JP-EISAI MEDICAL RESEARCH-EC-2016-014018

PATIENT
  Age: 68 Year
  Sex: Female
  Weight: 63 kg

DRUGS (10)
  1. LENVIMA [Suspect]
     Active Substance: LENVATINIB
     Indication: PAPILLARY THYROID CANCER
     Route: 048
     Dates: start: 20151020, end: 20151022
  2. PYDOXAL [Concomitant]
     Active Substance: PYRIDOXAL
  3. KERATINAMIN [Concomitant]
     Active Substance: UREA
  4. LEVOTHYROXINE SODIUM HYDRATE [Concomitant]
  5. LENVIMA [Suspect]
     Active Substance: LENVATINIB
     Route: 048
     Dates: start: 20151023, end: 20151110
  6. LENVIMA [Suspect]
     Active Substance: LENVATINIB
     Route: 048
     Dates: start: 20151111, end: 20151125
  7. HIRUDOID [Concomitant]
     Active Substance: GLYCOSAMINOGLYCANS
  8. MYSER CREAM [Concomitant]
  9. CANDESARTAN [Concomitant]
     Active Substance: CANDESARTAN
  10. ADALAT [Concomitant]
     Active Substance: NIFEDIPINE

REACTIONS (4)
  - Platelet count decreased [Recovering/Resolving]
  - Proteinuria [Recovered/Resolved]
  - Hypertension [Recovering/Resolving]
  - Fatigue [Recovered/Resolved]

NARRATIVE: CASE EVENT DATE: 20151022
